FAERS Safety Report 16489410 (Version 2)
Quarter: 2020Q2

REPORT INFORMATION
  Report Type: Spontaneous
  Country: US (occurrence: US)
  Receive Date: 20190628
  Receipt Date: 20200506
  Transmission Date: 20200713
  Serious: No
  Sender: FDA-Public Use
  Company Number: US-PFIZER INC-2019275468

PATIENT
  Age: 62 Year
  Sex: Female
  Weight: 59.86 kg

DRUGS (3)
  1. PREMARIN [Suspect]
     Active Substance: ESTROGENS, CONJUGATED
     Indication: LIBIDO DECREASED
     Dosage: UNK
     Route: 061
     Dates: start: 20190517
  2. IMVEXXY [Suspect]
     Active Substance: ESTRADIOL
     Indication: LIBIDO DISORDER
     Dosage: 10 UG, 1X/DAY
     Route: 067
     Dates: start: 20190517
  3. XANAX [Concomitant]
     Active Substance: ALPRAZOLAM
     Dosage: UNK, AS NEEDED (0.25 DOSAGE UNITS AS NEEDED)

REACTIONS (3)
  - Feeling jittery [Unknown]
  - Product use in unapproved indication [Unknown]
  - Off label use [Unknown]

NARRATIVE: CASE EVENT DATE: 20190517
